FAERS Safety Report 9033400 (Version 2)
Quarter: 2013Q1

REPORT INFORMATION
  Report Type: Spontaneous
  Country: US (occurrence: US)
  Receive Date: 20130128
  Receipt Date: 20130212
  Transmission Date: 20140127
  Serious: Yes (Other)
  Sender: FDA-Public Use
  Company Number: CHPA2013US001530

PATIENT
  Age: 42 Year
  Sex: Female

DRUGS (1)
  1. PREVACID 24HR 15MG [Suspect]
     Indication: GASTRIC PH DECREASED
     Dosage: 15 MG, BID
     Route: 048
     Dates: start: 20121218, end: 20130120

REACTIONS (13)
  - Malaise [Recovered/Resolved]
  - Diarrhoea [Recovered/Resolved]
  - Dizziness postural [Recovered/Resolved]
  - Glossodynia [Recovered/Resolved]
  - Paraesthesia [Recovered/Resolved]
  - Anxiety [Recovered/Resolved]
  - Decreased appetite [Recovered/Resolved]
  - Weight decreased [Recovered/Resolved]
  - Vitamin B12 deficiency [Recovered/Resolved]
  - Vitamin D deficiency [Recovered/Resolved]
  - Off label use [Unknown]
  - Prescribed overdose [Unknown]
  - Incorrect drug administration duration [Unknown]
